FAERS Safety Report 5017906-5 (Version None)
Quarter: 2006Q2

REPORT INFORMATION
  Report Type: 
  Country: None (occurrence: None)
  Receive Date: 20060602
  Receipt Date: 20060602
  Transmission Date: 20061013
  Serious: No
  Sender: FDA-Public Use
  Company Number: None

PATIENT
  Age: 27 Year
  Sex: Male
  Weight: 77.1115 kg

DRUGS (1)
  1. METRONIDAZOLE 250MG TAB [Suspect]
     Indication: PARASITIC INFECTION INTESTINAL
     Dosage: 750 MG   TID   PO
     Route: 048
     Dates: start: 20060511, end: 20060512

REACTIONS (2)
  - DYSGEUSIA [None]
  - NAUSEA [None]
